FAERS Safety Report 12576083 (Version 2)
Quarter: 2016Q3

REPORT INFORMATION
  Report Type: Spontaneous
  Country: TW (occurrence: TW)
  Receive Date: 20160720
  Receipt Date: 20160906
  Transmission Date: 20161109
  Serious: Yes (Death)
  Sender: FDA-Public Use
  Company Number: TW-ASTELLAS-2016US027587

PATIENT
  Sex: Male

DRUGS (2)
  1. VORICONAZOLE. [Concomitant]
     Active Substance: VORICONAZOLE
     Indication: ASPERGILLUS INFECTION
     Dosage: UNK UNK, UNKNOWN FREQ.
     Route: 050
     Dates: start: 2016, end: 2016
  2. MYCAMINE [Suspect]
     Active Substance: MICAFUNGIN SODIUM
     Indication: ASPERGILLUS INFECTION
     Dosage: UNK UNK, UNKNOWN FREQ.
     Route: 042
     Dates: start: 2016, end: 2016

REACTIONS (2)
  - Cardiac failure [Fatal]
  - Off label use [Unknown]

NARRATIVE: CASE EVENT DATE: 2016
